FAERS Safety Report 6296973-5 (Version None)
Quarter: 2009Q3

REPORT INFORMATION
  Report Type: 
  Country: None (occurrence: None)
  Receive Date: 20090804
  Receipt Date: 20090724
  Transmission Date: 20100115
  Serious: Yes (Hospitalization)
  Sender: FDA-Public Use
  Company Number: FR-ELI_LILLY_AND_COMPANY-FR200907005320

PATIENT
  Sex: Female

DRUGS (2)
  1. PROZAC [Suspect]
     Indication: DEPRESSION
     Dosage: 20 MG, UNK
     Route: 048
     Dates: start: 20090507, end: 20090703
  2. BIPRETERAX [Concomitant]
     Indication: HYPERTENSION
     Route: 048
     Dates: start: 20090507, end: 20090703

REACTIONS (5)
  - FALL [None]
  - HYPONATRAEMIA [None]
  - INJURY [None]
  - VERTIGO [None]
  - VOMITING [None]
